FAERS Safety Report 5861528-0 (Version None)
Quarter: 2008Q3

REPORT INFORMATION
  Report Type: 
  Country: None (occurrence: None)
  Receive Date: 20080827
  Receipt Date: 20080508
  Transmission Date: 20090109
  Serious: No
  Sender: FDA-Public Use
  Company Number: US-ABBOTT-08P-163-0454320-00

PATIENT
  Age: 63 Year
  Sex: Male

DRUGS (3)
  1. NIASPAN [Suspect]
     Indication: LIPIDS INCREASED
     Dosage: TRANSCUTANEOUS
     Route: 048
  2. TESTOSTERONE [Suspect]
     Indication: BLOOD TESTOSTERONE DECREASED
     Dosage: TRANSCUTANEOUS, VIA PUMP ONCE DAILY
     Dates: start: 20070101
  3. TESTOSTERONE [Suspect]
     Indication: BONE DENSITY DECREASED
     Dosage: TRANSCUTANEOUS, VIA PUMP ONCE DAILY

REACTIONS (3)
  - ACNE [None]
  - DRY SKIN [None]
  - RASH [None]
